FAERS Safety Report 11231149 (Version 1)
Quarter: 2015Q2

REPORT INFORMATION
  Report Type: Spontaneous
  Country: US (occurrence: None)
  Receive Date: 20150629
  Receipt Date: 20150629
  Transmission Date: 20150821
  Serious: Yes (Other)
  Sender: FDA-Public Use
  Company Number: None

PATIENT
  Age: 53 Year
  Sex: Male
  Weight: 235 kg

DRUGS (1)
  1. CEPHALEXIN 500 MG LUPIN [Suspect]
     Active Substance: CEPHALEXIN
     Indication: ACNE
     Route: 048
     Dates: start: 20150605, end: 20150615

REACTIONS (3)
  - Diarrhoea [None]
  - Rectal haemorrhage [None]
  - Abdominal pain lower [None]

NARRATIVE: CASE EVENT DATE: 20150622
